FAERS Safety Report 6300164-9 (Version None)
Quarter: 2009Q3

REPORT INFORMATION
  Report Type: 
  Country: None (occurrence: None)
  Receive Date: 20090806
  Receipt Date: 20090804
  Transmission Date: 20100115
  Serious: Yes (Death, Other)
  Sender: FDA-Public Use
  Company Number: PHEH2008US11556

PATIENT
  Sex: Male
  Weight: 60.091 kg

DRUGS (5)
  1. GLEEVEC [Suspect]
     Indication: CHRONIC MYELOID LEUKAEMIA
     Dosage: 400 MG, UNK
     Route: 048
     Dates: start: 20010105, end: 20040609
  2. GLEEVEC [Suspect]
     Dosage: 600 MG, UNK
     Dates: start: 20040610
  3. ACYCLOVIR [Concomitant]
     Indication: PROPHYLAXIS
     Dosage: 800 MG, UNK
     Route: 048
     Dates: start: 20030129
  4. ASPIRIN [Concomitant]
     Indication: PROPHYLAXIS
     Dosage: 81 MG, UNK
     Route: 048
     Dates: start: 20060705
  5. SIMVASTATIN [Concomitant]
     Indication: HYPERLIPIDAEMIA
     Dosage: 20 MG, UNK
     Route: 048

REACTIONS (2)
  - DIABETES MELLITUS [None]
  - ROAD TRAFFIC ACCIDENT [None]
